FAERS Safety Report 8568567 (Version 4)
Quarter: 2012Q4

REPORT INFORMATION
  Report Type: Report from Study
  Country: GB (occurrence: GB)
  Receive Date: 20120518
  Receipt Date: 20121012
  Transmission Date: 20130627
  Serious: Yes (Hospitalization)
  Sender: FDA-Public Use
  Company Number: GB-PFIZER INC-2012112030

PATIENT
  Age: 55 Year
  Sex: Male

DRUGS (6)
  1. SUNITINIB MALATE [Suspect]
     Indication: TRANSITIONAL CELL CARCINOMA
     Dosage: 25 mg, UNK
     Dates: start: 20120403
  2. CISPLATIN [Suspect]
     Indication: TRANSITIONAL CELL CARCINOMA
     Dosage: 140 mg, UNK
     Route: 042
     Dates: start: 20120402
  3. GEMCITABINE [Concomitant]
     Indication: TRANSITIONAL CELL CARCINOMA
     Dosage: 2000 mg, UNK
     Route: 042
     Dates: start: 20120402
  4. ZOMORPH [Concomitant]
     Dosage: 60 mg, 2x/day
     Route: 048
     Dates: start: 20120403
  5. LANSOPRAZOLE [Concomitant]
     Dosage: 30 mg, 1x/day
     Route: 048
     Dates: start: 20120417
  6. ZOPICLONE [Concomitant]
     Dosage: 3.75 mg, 1x/day
     Route: 048
     Dates: start: 20120501

REACTIONS (1)
  - Syncope [Recovered/Resolved]
